FAERS Safety Report 15755438 (Version 2)
Quarter: 2021Q3

REPORT INFORMATION
  Report Type: Report from Study
  Country: JP (occurrence: JP)
  Receive Date: 20181224
  Receipt Date: 20210814
  Transmission Date: 20211014
  Serious: Yes (Hospitalization, Other)
  Sender: FDA-Public Use
  Company Number: JP-TEVA-2018-JP-991699

PATIENT
  Age: 63 Year
  Sex: Male

DRUGS (5)
  1. ELBASVIR/GRAZOPREVIR [Interacting]
     Active Substance: ELBASVIR\GRAZOPREVIR
     Indication: HEPATITIS C
     Route: 065
  2. TACROLIMUS. [Suspect]
     Active Substance: TACROLIMUS
     Dosage: 5 MILLIGRAM DAILY;
     Route: 065
  3. MYCOPHENOLATE MOFETIL. [Suspect]
     Active Substance: MYCOPHENOLATE MOFETIL
     Indication: IMMUNOSUPPRESSANT DRUG THERAPY
     Dosage: 1.5 GRAM DAILY;
     Route: 065
  4. PREDNISOLONE. [Suspect]
     Active Substance: PREDNISOLONE
     Indication: IMMUNOSUPPRESSANT DRUG THERAPY
     Dosage: 5 MILLIGRAM DAILY;
     Route: 065
  5. TACROLIMUS. [Suspect]
     Active Substance: TACROLIMUS
     Indication: IMMUNOSUPPRESSANT DRUG THERAPY
     Dosage: 8 MILLIGRAM DAILY;
     Route: 065

REACTIONS (4)
  - Drug level increased [Recovering/Resolving]
  - Diarrhoea [Recovered/Resolved]
  - Drug interaction [Recovering/Resolving]
  - Cytomegalovirus gastritis [Recovering/Resolving]
